FAERS Safety Report 8297684-7 (Version None)
Quarter: 2012Q2

REPORT INFORMATION
  Report Type: 
  Country: None (occurrence: None)
  Receive Date: 20120417
  Receipt Date: 20120405
  Transmission Date: 20120825
  Serious: Yes (Death, Hospitalization)
  Sender: FDA-Public Use
  Company Number: DSA_56144_2012

PATIENT
  Sex: Female

DRUGS (2)
  1. METRONIDAZOLE [Suspect]
     Indication: PRODUCT USED FOR UNKNOWN INDICATION
     Dosage: (DF 100 TABLETS ONE TIME, NOT THE PRESCRIBED AMOUNT ORAL)
     Route: 048
  2. ALCOHOL (ALCOHOL) [Suspect]
     Indication: PRODUCT USED FOR UNKNOWN INDICATION
     Dosage: (250 ML 1X ORAL)
     Route: 048

REACTIONS (5)
  - INTENTIONAL OVERDOSE [None]
  - HEPATIC NECROSIS [None]
  - LOSS OF CONSCIOUSNESS [None]
  - SUICIDE ATTEMPT [None]
  - HEPATIC FAILURE [None]
